FAERS Safety Report 6019159-8 (Version None)
Quarter: 2008Q4

REPORT INFORMATION
  Report Type: 
  Country: None (occurrence: None)
  Receive Date: 20081224
  Receipt Date: 20081217
  Transmission Date: 20090506
  Serious: Yes (Life-Threatening, Hospitalization)
  Sender: FDA-Public Use
  Company Number: JP-JNJFOC-20081103668

PATIENT
  Sex: Female
  Weight: 54 kg

DRUGS (6)
  1. REMICADE [Suspect]
     Dosage: DOSES 2 THROUGH 7 ADMINISTERED ON UNKNOWN DATES
     Route: 042
  2. REMICADE [Suspect]
     Dosage: TOTAL OF 8 INFUSIONS; INFUSION 2-7 ADMINISTERED ON UNKNOWN DATES
     Route: 042
  3. REMICADE [Suspect]
     Indication: RHEUMATOID ARTHRITIS
     Dosage: TOTAL OF 8 INFUSIONS ADMINISTERED ON UNKNOWN DATES
     Route: 042
  4. RHEUMATREX [Suspect]
     Indication: RHEUMATOID ARTHRITIS
     Dosage: START DATE UNKNOWN, BUT ^2 YEARS BEFORE^
     Route: 048
  5. DEPAS [Concomitant]
     Indication: INSOMNIA
     Dosage: START DATE UNKNOWN, BUT ^2 YEARS BEFORE^
     Route: 048
  6. BENET [Concomitant]
     Indication: OSTEOPOROSIS
     Route: 048

REACTIONS (3)
  - HELICOBACTER PYLORI IDENTIFICATION TEST POSITIVE [None]
  - IDIOPATHIC THROMBOCYTOPENIC PURPURA [None]
  - MYELODYSPLASTIC SYNDROME [None]
